FAERS Safety Report 8241706-6 (Version None)
Quarter: 2012Q1

REPORT INFORMATION
  Report Type: 
  Country: None (occurrence: None)
  Receive Date: 20120328
  Receipt Date: 20120320
  Transmission Date: 20120608
  Serious: Yes (Hospitalization, Other)
  Sender: FDA-Public Use
  Company Number: US-ABBOTT-12P-163-0917730-00

PATIENT
  Sex: Female
  Weight: 78.996 kg

DRUGS (5)
  1. ESTRACE [Concomitant]
     Indication: PRODUCT USED FOR UNKNOWN INDICATION
     Dosage: DAILY DOSE 75 MG
  2. SYNTHROID [Suspect]
     Dates: start: 20110101, end: 20120101
  3. SYNTHROID [Suspect]
     Indication: HYPOTHYROIDISM
     Route: 048
     Dates: start: 19900101, end: 19980101
  4. SYNTHROID [Suspect]
     Dates: start: 19980101, end: 20110101
  5. SYNTHROID [Suspect]
     Dates: start: 20120101

REACTIONS (8)
  - INSOMNIA [None]
  - ENDOMETRIOSIS [None]
  - ANXIETY [None]
  - DRY EYE [None]
  - BLOOD THYROID STIMULATING HORMONE INCREASED [None]
  - TREMOR [None]
  - CHOLELITHIASIS [None]
  - DEPRESSION [None]
